FAERS Safety Report 14384548 (Version 4)
Quarter: 2020Q3

REPORT INFORMATION
  Report Type: Spontaneous
  Country: PT (occurrence: PT)
  Receive Date: 20180115
  Receipt Date: 20200715
  Transmission Date: 20201102
  Serious: Yes (Hospitalization, Disabling, Other)
  Sender: FDA-Public Use
  Company Number: PT-MYLANLABS-2018M1002860

PATIENT
  Age: 70 Year
  Sex: Female

DRUGS (3)
  1. CARBOPLATIN. [Suspect]
     Active Substance: CARBOPLATIN
     Indication: LUNG CANCER METASTATIC
     Dosage: UNK, 1 CYCLICAL
     Route: 065
  2. CARBOPLATIN. [Suspect]
     Active Substance: CARBOPLATIN
     Indication: NEUROENDOCRINE TUMOUR OF THE LUNG METASTATIC
  3. DOCETAXEL. [Suspect]
     Active Substance: DOCETAXEL
     Indication: NEUROENDOCRINE TUMOUR OF THE LUNG METASTATIC
     Dosage: UNK, 1 CYCLICAL
     Route: 065

REACTIONS (14)
  - Inflammation [Unknown]
  - Bacteraemia [Recovered/Resolved]
  - Amaurosis [Not Recovered/Not Resolved]
  - Panophthalmitis [Recovered/Resolved with Sequelae]
  - Febrile neutropenia [Recovered/Resolved]
  - Pyelonephritis [Unknown]
  - Pruritus [Unknown]
  - Off label use [Recovered/Resolved]
  - Immunosuppression [Recovered/Resolved]
  - Bacterial pyelonephritis [Recovered/Resolved]
  - Product use in unapproved indication [Recovered/Resolved]
  - Urosepsis [Recovered/Resolved]
  - Escherichia sepsis [Recovered/Resolved]
  - Escherichia bacteraemia [Recovered/Resolved]
